FAERS Safety Report 8421241-2 (Version None)
Quarter: 2012Q2

REPORT INFORMATION
  Report Type: 
  Country: None (occurrence: None)
  Receive Date: 20120608
  Receipt Date: 20120605
  Transmission Date: 20120825
  Serious: Yes (Hospitalization, Other)
  Sender: FDA-Public Use
  Company Number: JP-JNJFOC-20120520869

PATIENT
  Sex: Female
  Weight: 70 kg

DRUGS (7)
  1. INVEGA [Suspect]
     Route: 048
     Dates: start: 20111229, end: 20120116
  2. YODEL [Concomitant]
     Indication: PROPHYLAXIS
     Route: 048
  3. INVEGA [Suspect]
     Indication: SCHIZOPHRENIA, PARANOID TYPE
     Route: 048
     Dates: start: 20111215, end: 20111228
  4. TASMOLIN [Concomitant]
     Indication: PROPHYLAXIS
     Route: 048
  5. GLIMEPIRIDE [Concomitant]
     Indication: DIABETES MELLITUS
     Route: 048
  6. HALOPERIDOL [Concomitant]
     Indication: SCHIZOPHRENIA, PARANOID TYPE
     Route: 048
  7. MEDIPEACE [Concomitant]
     Indication: PROPHYLAXIS
     Route: 048

REACTIONS (3)
  - SCHIZOPHRENIA, PARANOID TYPE [None]
  - BLOOD PROLACTIN INCREASED [None]
  - BLOOD GLUCOSE INCREASED [None]
